FAERS Safety Report 24604321 (Version 1)
Quarter: 2024Q4

REPORT INFORMATION
  Report Type: Spontaneous
  Country: US (occurrence: US)
  Receive Date: 20241111
  Receipt Date: 20241111
  Transmission Date: 20250115
  Serious: No
  Sender: PFIZER
  Company Number: US-PFIZER INC-202400296461

PATIENT
  Sex: Female
  Weight: 74.39 kg

DRUGS (2)
  1. ESTRADIOL [Suspect]
     Active Substance: ESTRADIOL
     Indication: Skin atrophy
  2. ESTRADIOL [Suspect]
     Active Substance: ESTRADIOL
     Indication: Smear cervix abnormal

REACTIONS (1)
  - Drug hypersensitivity [Unknown]
